FAERS Safety Report 23683619 (Version 2)
Quarter: 2024Q2

REPORT INFORMATION
  Report Type: Spontaneous
  Country: US (occurrence: US)
  Receive Date: 20240328
  Receipt Date: 20240430
  Transmission Date: 20240717
  Serious: No
  Sender: FDA-Public Use
  Company Number: US-SA-SAC20240322000524

PATIENT
  Age: 72 Year
  Sex: Female

DRUGS (12)
  1. DUPIXENT [Suspect]
     Active Substance: DUPILUMAB
     Indication: Dermatitis atopic
     Dosage: 300 MG, QOW
     Route: 058
  2. ATORVASTATIN [Concomitant]
     Active Substance: ATORVASTATIN
  3. HYDROCHLOROTHIAZIDE [Concomitant]
     Active Substance: HYDROCHLOROTHIAZIDE
  4. ELIQUIS [Concomitant]
     Active Substance: APIXABAN
  5. LISINOPRIL [Concomitant]
     Active Substance: LISINOPRIL
  6. LISINOPRIL [Concomitant]
     Active Substance: LISINOPRIL
  7. VITAMIN D3 [Concomitant]
     Active Substance: CHOLECALCIFEROL
  8. VITAMIN D3 [Concomitant]
     Active Substance: CHOLECALCIFEROL
  9. EFFEXOR [Concomitant]
     Active Substance: VENLAFAXINE HYDROCHLORIDE
  10. EFFEXOR [Concomitant]
     Active Substance: VENLAFAXINE HYDROCHLORIDE
  11. MACRODANTIN [Concomitant]
     Active Substance: NITROFURANTOIN
  12. ASPIRIN [Concomitant]
     Active Substance: ASPIRIN

REACTIONS (13)
  - Sinus disorder [Unknown]
  - Epistaxis [Unknown]
  - Nasal congestion [Unknown]
  - Condition aggravated [Unknown]
  - Nausea [Not Recovered/Not Resolved]
  - Dry skin [Unknown]
  - COVID-19 [Not Recovered/Not Resolved]
  - Skin exfoliation [Unknown]
  - Dry eye [Unknown]
  - Pruritus [Not Recovered/Not Resolved]
  - Urinary tract infection [Not Recovered/Not Resolved]
  - Eye pruritus [Not Recovered/Not Resolved]
  - Skin swelling [Not Recovered/Not Resolved]

NARRATIVE: CASE EVENT DATE: 20240318
